FAERS Safety Report 6835714-7 (Version None)
Quarter: 2010Q3

REPORT INFORMATION
  Report Type: 
  Country: None (occurrence: None)
  Receive Date: 20100713
  Receipt Date: 20100621
  Transmission Date: 20110219
  Serious: Yes (Life-Threatening)
  Sender: FDA-Public Use
  Company Number: JP-JNJFOC-20100406422

PATIENT
  Sex: Male

DRUGS (2)
  1. FINIBAX [Suspect]
     Indication: PNEUMONIA
     Route: 041
  2. ZOSYN [Concomitant]
     Indication: PNEUMONIA
     Route: 042

REACTIONS (1)
  - CONVULSION [None]
